FAERS Safety Report 7791378-X (Version None)
Quarter: 2011Q4

REPORT INFORMATION
  Report Type: 
  Country: None (occurrence: None)
  Receive Date: 20111003
  Receipt Date: 20110921
  Transmission Date: 20120403
  Serious: Yes (Other)
  Sender: FDA-Public Use
  Company Number: US-ELI_LILLY_AND_COMPANY-US201108007117

PATIENT
  Age: 60 Year
  Sex: Female
  Weight: 40.816 kg

DRUGS (3)
  1. WELLBUTRIN XL [Concomitant]
     Dosage: UNK
     Dates: start: 20090101, end: 20110701
  2. PROVIGIL [Concomitant]
     Dosage: UNK
     Route: 048
     Dates: start: 20090616, end: 20110701
  3. CYMBALTA [Suspect]
     Dosage: 60 MG, QD
     Route: 048
     Dates: start: 20090101, end: 20110714

REACTIONS (13)
  - DRY SKIN [None]
  - RASH [None]
  - SKIN LESION [None]
  - WOUND SECRETION [None]
  - OEDEMA PERIPHERAL [None]
  - IMPAIRED HEALING [None]
  - PRURITUS [None]
  - COELIAC DISEASE [None]
  - LIMB INJURY [None]
  - LIVER DISORDER [None]
  - CUTIS LAXA [None]
  - FALL [None]
  - TOXIC EPIDERMAL NECROLYSIS [None]
